FAERS Safety Report 5235150-3 (Version None)
Quarter: 2007Q1

REPORT INFORMATION
  Report Type: 
  Country: None (occurrence: None)
  Receive Date: 20070207
  Receipt Date: 20070131
  Transmission Date: 20070707
  Serious: Yes (Other)
  Sender: FDA-Public Use
  Company Number: 2007SP002027

PATIENT
  Age: 59 Year
  Sex: Female

DRUGS (3)
  1. TEMODAL [Suspect]
     Indication: DRUG USE FOR UNKNOWN INDICATION
     Dosage: 150 MG/M2 ; 200 MCG/M2
     Dates: start: 20070115, end: 20070119
  2. TEMODAL [Suspect]
     Indication: DRUG USE FOR UNKNOWN INDICATION
     Dosage: 150 MG/M2 ; 200 MCG/M2
     Dates: start: 20061201
  3. WARFARIN SODIUM [Suspect]
     Indication: DRUG USE FOR UNKNOWN INDICATION

REACTIONS (2)
  - COAGULATION TIME PROLONGED [None]
  - INTERNATIONAL NORMALISED RATIO INCREASED [None]
